FAERS Safety Report 9052589 (Version 2)
Quarter: 2013Q1

REPORT INFORMATION
  Report Type: Spontaneous
  Country: US (occurrence: US)
  Receive Date: 20130207
  Receipt Date: 20130329
  Transmission Date: 20140127
  Serious: No
  Sender: FDA-Public Use
  Company Number: US-PFIZER INC-2013047504

PATIENT
  Age: 25 Year
  Sex: Female
  Weight: 90.7 kg

DRUGS (1)
  1. ADVIL MIGRAINE [Suspect]
     Indication: HEADACHE
     Dosage: TWO CAPSULES, 1X/DAY
     Route: 048
     Dates: start: 201301

REACTIONS (1)
  - Drug ineffective [Unknown]
